FAERS Safety Report 11558436 (Version 1)
Quarter: 2015Q3

REPORT INFORMATION
  Report Type: Spontaneous
  Country: US (occurrence: US)
  Receive Date: 20150928
  Receipt Date: 20150928
  Transmission Date: 20151125
  Serious: No
  Sender: FDA-Public Use
  Company Number: US-PFIZER INC-2015318984

PATIENT
  Sex: Female

DRUGS (3)
  1. QUILLIVANT XR [Suspect]
     Active Substance: METHYLPHENIDATE HYDROCHLORIDE
     Dosage: 6 ML, UNK
  2. QUILLIVANT XR [Suspect]
     Active Substance: METHYLPHENIDATE HYDROCHLORIDE
     Dosage: 2 ML, UNK
  3. QUILLIVANT XR [Suspect]
     Active Substance: METHYLPHENIDATE HYDROCHLORIDE
     Dosage: 12 ML, UNK

REACTIONS (3)
  - Cardiac discomfort [Recovered/Resolved]
  - Feeling abnormal [Recovered/Resolved]
  - Tremor [Recovered/Resolved]
